FAERS Safety Report 24036119 (Version 1)
Quarter: 2024Q3

REPORT INFORMATION
  Report Type: Spontaneous
  Country: US (occurrence: US)
  Receive Date: 20240701
  Receipt Date: 20240701
  Transmission Date: 20241016
  Serious: No
  Sender: ABBVIE
  Company Number: US-ABBVIE-5817556

PATIENT
  Sex: Female

DRUGS (7)
  1. BOTOX COSMETIC [Suspect]
     Active Substance: ONABOTULINUMTOXINA
     Indication: Skin wrinkling
     Dosage: TIME INTERVAL: AS NECESSARY: FREQUENCY: EVERY THREE TO FOUR MONTHS
     Route: 030
     Dates: start: 20080626, end: 20080626
  2. BOTOX COSMETIC [Suspect]
     Active Substance: ONABOTULINUMTOXINA
     Indication: Skin wrinkling
     Dosage: TIME INTERVAL: AS NECESSARY: 30 UNITS, FREQUENCY: EVERY THREE TO FOUR MONTHS
     Route: 065
     Dates: start: 20240227, end: 20240227
  3. BOTOX COSMETIC [Suspect]
     Active Substance: ONABOTULINUMTOXINA
     Indication: Skin wrinkling
     Dosage: TIME INTERVAL: AS NECESSARY: 24 UNITS,  FREQUENCY: EVERY THREE TO FOUR MONTHS
     Route: 065
     Dates: start: 20240227, end: 20240227
  4. BOTOX COSMETIC [Suspect]
     Active Substance: ONABOTULINUMTOXINA
     Indication: Skin wrinkling
     Dosage: TIME INTERVAL: AS NECESSARY: 15 UNITS,  FREQUENCY: EVERY THREE TO FOUR MONTHS
     Route: 065
     Dates: start: 20240227, end: 20240227
  5. BOTOX COSMETIC [Suspect]
     Active Substance: ONABOTULINUMTOXINA
     Indication: Skin wrinkling
     Dosage: TIME INTERVAL: AS NECESSARY: 30 UNITS, FREQUENCY: EVERY THREE TO FOUR MONTHS
     Route: 065
     Dates: start: 20240510, end: 20240510
  6. BOTOX COSMETIC [Suspect]
     Active Substance: ONABOTULINUMTOXINA
     Indication: Skin wrinkling
     Dosage: TIME INTERVAL: AS NECESSARY: 24 UNITS,  FREQUENCY: EVERY THREE TO FOUR MONTHS
     Route: 065
     Dates: start: 20240510, end: 20240510
  7. BOTOX COSMETIC [Suspect]
     Active Substance: ONABOTULINUMTOXINA
     Indication: Skin wrinkling
     Dosage: TIME INTERVAL: AS NECESSARY: 15 UNITS,  FREQUENCY: EVERY THREE TO FOUR MONTHS
     Route: 065
     Dates: start: 20240510, end: 20240510

REACTIONS (1)
  - Therapeutic response shortened [Unknown]
